FAERS Safety Report 24606232 (Version 2)
Quarter: 2025Q3

REPORT INFORMATION
  Report Type: Spontaneous
  Country: US (occurrence: US)
  Receive Date: 20241112
  Receipt Date: 20250810
  Transmission Date: 20251020
  Serious: Yes (Other)
  Sender: ALEXION PHARMACEUTICALS
  Company Number: US-AstraZeneca-CH-00728230A

PATIENT
  Sex: Female

DRUGS (2)
  1. LYNPARZA [Suspect]
     Active Substance: OLAPARIB
     Indication: Ovarian cancer
  2. LETROZOLE [Concomitant]
     Active Substance: LETROZOLE
     Route: 065

REACTIONS (12)
  - Nausea [Recovered/Resolved]
  - Drug ineffective [Unknown]
  - Myocardial infarction [Unknown]
  - Peripheral artery occlusion [Unknown]
  - Malignant neoplasm progression [Unknown]
  - Gastrointestinal carcinoma [Unknown]
  - Hepatic cancer [Unknown]
  - Neoplasm [Not Recovered/Not Resolved]
  - Adenocarcinoma [Unknown]
  - Erythema [Unknown]
  - Face oedema [Unknown]
  - Dysarthria [Unknown]
